FAERS Safety Report 11350500 (Version 2)
Quarter: 2015Q4

REPORT INFORMATION
  Report Type: Report from Study
  Country: US (occurrence: US)
  Receive Date: 20150807
  Receipt Date: 20151009
  Transmission Date: 20160304
  Serious: Yes (Hospitalization)
  Sender: FDA-Public Use
  Company Number: US-PFIZER INC-2015255211

PATIENT
  Age: 14 Year
  Sex: Female
  Weight: 38.5 kg

DRUGS (3)
  1. CYCLOPHOSPHAMIDE. [Concomitant]
     Active Substance: CYCLOPHOSPHAMIDE
     Indication: ADENOCARCINOMA GASTRIC
     Dosage: 250 MG/M2/DOSE, DAYS 1-5 OF EACH 21 DAY CYCLE
     Route: 042
     Dates: start: 20150525, end: 20150727
  2. CRIZOTINIB [Suspect]
     Active Substance: CRIZOTINIB
     Indication: ADENOCARCINOMA GASTRIC
     Dosage: 215 MG/M2/DOSE, DAYS 1-21 OF EACH CYCLE
     Route: 048
     Dates: start: 20150525, end: 20150727
  3. TOPOTECAN [Concomitant]
     Active Substance: TOPOTECAN\TOPOTECAN HYDROCHLORIDE
     Indication: ADENOCARCINOMA GASTRIC
     Dosage: 0.75 MG/M2/DOSE, DAYS 1-5 OF EACH 21 DAYS CYCLE
     Route: 042
     Dates: start: 20150525, end: 20150727

REACTIONS (1)
  - Oesophageal pain [Recovered/Resolved with Sequelae]

NARRATIVE: CASE EVENT DATE: 20150727
